FAERS Safety Report 10690295 (Version 2)
Quarter: 2015Q1

REPORT INFORMATION
  Report Type: Spontaneous
  Country: FR (occurrence: FR)
  Receive Date: 20150105
  Receipt Date: 20150107
  Transmission Date: 20150720
  Serious: Yes (Hospitalization)
  Sender: FDA-Public Use
  Company Number: FR-PFIZER INC-2014361420

PATIENT
  Age: 76 Year
  Sex: Male

DRUGS (3)
  1. KARDEGIC [Concomitant]
     Active Substance: ASPIRIN LYSINE
  2. CELEBREX [Suspect]
     Active Substance: CELECOXIB
     Indication: CARPAL TUNNEL SYNDROME
     Dosage: 200 MG CAPSULE
     Route: 048
     Dates: start: 20141124, end: 20141204
  3. FLEXEA [Concomitant]

REACTIONS (1)
  - Acute generalised exanthematous pustulosis [Recovered/Resolved]

NARRATIVE: CASE EVENT DATE: 20141206
